FAERS Safety Report 7442928-4 (Version None)
Quarter: 2011Q2

REPORT INFORMATION
  Report Type: 
  Country: None (occurrence: None)
  Receive Date: 20110428
  Receipt Date: 20110419
  Transmission Date: 20111010
  Serious: Yes (Hospitalization)
  Sender: FDA-Public Use
  Company Number: US-ASTRAZENECA-2010SE56583

PATIENT
  Age: 88 Year
  Sex: Female

DRUGS (1)
  1. SYMBICORT [Suspect]
     Dosage: 80/4.5 UG
     Route: 055

REACTIONS (7)
  - SPINAL FRACTURE [None]
  - BACK INJURY [None]
  - SKELETAL INJURY [None]
  - FALL [None]
  - DYSPNOEA [None]
  - CHEST DISCOMFORT [None]
  - HEADACHE [None]
